FAERS Safety Report 6929727-4 (Version None)
Quarter: 2010Q3

REPORT INFORMATION
  Report Type: 
  Country: None (occurrence: None)
  Receive Date: 20100818
  Receipt Date: 20100811
  Transmission Date: 20110219
  Serious: Yes (Other)
  Sender: FDA-Public Use
  Company Number: JP-SANOFI-AVENTIS-2010SA047582

PATIENT
  Age: 42 Year
  Sex: Female

DRUGS (11)
  1. OXALIPLATIN [Suspect]
     Indication: RECTAL CANCER METASTATIC
     Route: 041
     Dates: start: 20080819, end: 20080819
  2. OXALIPLATIN [Suspect]
     Route: 041
     Dates: start: 20081002, end: 20081002
  3. CALCIUM LEVOFOLINATE [Suspect]
     Indication: RECTAL CANCER METASTATIC
     Route: 041
     Dates: start: 20080819, end: 20080819
  4. CALCIUM LEVOFOLINATE [Suspect]
     Route: 041
     Dates: start: 20100614, end: 20100614
  5. FLUOROURACIL [Suspect]
     Indication: RECTAL CANCER METASTATIC
     Route: 040
     Dates: start: 20080819, end: 20080819
  6. FLUOROURACIL [Suspect]
     Route: 041
     Dates: start: 20080819, end: 20080820
  7. FLUOROURACIL [Suspect]
     Route: 040
     Dates: start: 20081003, end: 20081003
  8. FLUOROURACIL [Suspect]
     Route: 041
     Dates: start: 20100614, end: 20100614
  9. AVASTIN [Suspect]
     Indication: RECTAL CANCER METASTATIC
     Route: 041
     Dates: start: 20081002, end: 20081002
  10. AVASTIN [Suspect]
     Route: 041
     Dates: start: 20100614, end: 20100614
  11. XELODA [Concomitant]
     Dates: start: 20090209, end: 20090723

REACTIONS (3)
  - BLOOD PRESSURE INCREASED [None]
  - LEUKOENCEPHALOPATHY [None]
  - OVARIAN HAEMORRHAGE [None]
